FAERS Safety Report 6726729-8 (Version None)
Quarter: 2010Q2

REPORT INFORMATION
  Report Type: 
  Country: None (occurrence: None)
  Receive Date: 20100514
  Receipt Date: 20100506
  Transmission Date: 20101027
  Serious: Yes (Hospitalization)
  Sender: FDA-Public Use
  Company Number: ES-ROCHE-701779

PATIENT
  Sex: Male

DRUGS (2)
  1. ROFERON-A [Suspect]
     Indication: HEPATITIS C
     Dosage: VIAL; MEDICATION ERROR; INTRAVENOUS
     Route: 050
     Dates: start: 20100506, end: 20100506
  2. ROFERON-A [Suspect]
     Dosage: SUBCUTANEOUS
     Route: 050

REACTIONS (6)
  - ABDOMINAL DISCOMFORT [None]
  - GENERAL PHYSICAL HEALTH DETERIORATION [None]
  - JAUNDICE [None]
  - MEDICATION ERROR [None]
  - PYREXIA [None]
  - URINARY TRACT INFECTION [None]
